FAERS Safety Report 6426011-2 (Version None)
Quarter: 2009Q4

REPORT INFORMATION
  Report Type: 
  Country: None (occurrence: None)
  Receive Date: 20091104
  Receipt Date: 20091026
  Transmission Date: 20100525
  Serious: Yes (Hospitalization)
  Sender: FDA-Public Use
  Company Number: GB-RANBAXY-2009RR-28906

PATIENT
  Age: 69 Year
  Sex: Female

DRUGS (2)
  1. PARACETAMOL [Suspect]
     Indication: DRUG USE FOR UNKNOWN INDICATION
  2. BUTOBARBITONE [Suspect]
     Indication: DRUG USE FOR UNKNOWN INDICATION

REACTIONS (7)
  - HEPATIC FUNCTION ABNORMAL [None]
  - HYPOTENSION [None]
  - HYPOTHERMIA [None]
  - JAUNDICE [None]
  - METABOLIC ACIDOSIS [None]
  - OVERDOSE [None]
  - UNRESPONSIVE TO STIMULI [None]
